FAERS Safety Report 9539568 (Version 1)
Quarter: 2013Q3

REPORT INFORMATION
  Report Type: Spontaneous
  Country: FR (occurrence: FR)
  Receive Date: 20130920
  Receipt Date: 20130920
  Transmission Date: 20140515
  Serious: Yes (Hospitalization)
  Sender: FDA-Public Use
  Company Number: FR-009507513-1308FRA001736

PATIENT
  Age: 57 Year
  Sex: Male
  Weight: 92 kg

DRUGS (9)
  1. MK-8908 [Suspect]
     Indication: CHRONIC HEPATITIS C
     Dosage: 1200 MG, QD
     Route: 048
     Dates: start: 20130211
  2. PEGASYS [Suspect]
     Indication: CHRONIC HEPATITIS C
     Dosage: 180 MICROGRAM, QW
     Dates: start: 20130211
  3. TELAPREVIR [Suspect]
     Indication: CHRONIC HEPATITIS C
     Dosage: QD
     Dates: start: 20130211, end: 20130510
  4. LOVENOX [Concomitant]
     Indication: ANTICOAGULANT THERAPY
     Dosage: 40 MG, QD
     Dates: start: 20130205
  5. INIPOMP [Concomitant]
     Indication: OESOPHAGITIS
     Dosage: 40 MG, QD
     Dates: start: 20130205
  6. PRIMPERAN [Concomitant]
     Indication: NAUSEA
     Dosage: 10 MG, UNK
     Dates: start: 20130205
  7. ZOPHREN (ONDANSETRON HYDROCHLORIDE) [Concomitant]
     Indication: NAUSEA
     Dosage: 4 MG, TID
     Dates: start: 20130205
  8. DIFFU-K [Concomitant]
     Indication: HYPOKALAEMIA
     Dosage: UNK
     Dates: start: 20130205
  9. STILNOX [Concomitant]
     Indication: INSOMNIA
     Dosage: 10 MG, QD
     Dates: start: 20130205

REACTIONS (1)
  - Intestinal obstruction [Recovered/Resolved]
